FAERS Safety Report 25644493 (Version 1)
Quarter: 2025Q3

REPORT INFORMATION
  Report Type: Spontaneous
  Country: IN (occurrence: IN)
  Receive Date: 20250805
  Receipt Date: 20250805
  Transmission Date: 20251021
  Serious: Yes (Hospitalization, Other)
  Sender: STRIDES
  Company Number: IN-STRIDES ARCOLAB LIMITED-2025SP009623

PATIENT
  Age: 63 Year
  Sex: Male

DRUGS (8)
  1. PREDNISOLONE [Suspect]
     Active Substance: PREDNISOLONE
     Indication: Pericarditis
     Route: 065
  2. PREDNISOLONE [Suspect]
     Active Substance: PREDNISOLONE
     Route: 065
  3. COLCHICINE [Suspect]
     Active Substance: COLCHICINE
     Indication: Pericarditis
     Route: 065
  4. NELVUTAMIG [Suspect]
     Active Substance: NELVUTAMIG
     Indication: Metastatic malignant melanoma
     Route: 065
  5. NIVOLUMAB [Suspect]
     Active Substance: NIVOLUMAB
     Indication: Metastatic malignant melanoma
     Route: 065
  6. METHYLPREDNISOLONE [Concomitant]
     Active Substance: METHYLPREDNISOLONE
     Indication: Cardiomyopathy
     Route: 065
  7. HYDROCORTISONE [Concomitant]
     Active Substance: HYDROCORTISONE
     Indication: Adrenal insufficiency
     Route: 065
  8. RIVAROXABAN [Concomitant]
     Active Substance: RIVAROXABAN
     Indication: Pulmonary embolism
     Route: 065

REACTIONS (2)
  - Pericarditis [Recovered/Resolved]
  - Off label use [Unknown]
